FAERS Safety Report 8145223-3 (Version None)
Quarter: 2012Q1

REPORT INFORMATION
  Report Type: 
  Country: None (occurrence: None)
  Receive Date: 20120217
  Receipt Date: 20120213
  Transmission Date: 20120608
  Serious: Yes (Other)
  Sender: FDA-Public Use
  Company Number: US-PFIZER INC-2012039221

PATIENT
  Sex: Female

DRUGS (2)
  1. VANCOMYCIN HCL [Suspect]
     Dosage: UNK
  2. PIPERACILLIN AND TAZOBACTAM [Suspect]
     Dosage: UNK

REACTIONS (2)
  - EOSINOPHIL COUNT [None]
  - LINEAR IGA DISEASE [None]
